FAERS Safety Report 6074583-2 (Version None)
Quarter: 2009Q1

REPORT INFORMATION
  Report Type: 
  Country: None (occurrence: None)
  Receive Date: 20090206
  Receipt Date: 20081215
  Transmission Date: 20090719
  Serious: Yes (Hospitalization, Other)
  Sender: FDA-Public Use
  Company Number: DSU-2008-02216

PATIENT
  Age: 49 Year
  Sex: Male
  Weight: 111.1313 kg

DRUGS (4)
  1. BENICAR HCT [Suspect]
     Indication: HYPERTENSION
     Dosage: 40/25 MG (QD), PER ORAL
     Route: 048
     Dates: start: 20080101, end: 20080901
  2. PLAVIX (CLOPIDOGREL SULFATE) (75 MILLIGRAM) (CLOPIDOGREL SULFATE) [Concomitant]
  3. ZETIA (EZETIMIBE) (10 MILLIGRAM) (EZETIMIBE) [Concomitant]
  4. MULTIVITAMIN (ERGOCALCIFEROL, ASCORBIC ACID, FOLIC ACID, THIAMIDE HYDR [Concomitant]

REACTIONS (4)
  - ABDOMINAL DISCOMFORT [None]
  - BLOOD PRESSURE INCREASED [None]
  - CORONARY ARTERY BYPASS [None]
  - DIZZINESS [None]
